FAERS Safety Report 10599400 (Version 1)
Quarter: 2014Q4

REPORT INFORMATION
  Report Type: Spontaneous
  Country: US (occurrence: US)
  Receive Date: 20141121
  Receipt Date: 20141121
  Transmission Date: 20150529
  Serious: Yes (Other)
  Sender: FDA-Public Use
  Company Number: US-BRISTOL-MYERS SQUIBB COMPANY-21607445

PATIENT
  Age: 91 Year
  Sex: Male
  Weight: 80.04 kg

DRUGS (14)
  1. AMIODARONE [Concomitant]
     Active Substance: AMIODARONE
  2. KEPPRA [Concomitant]
     Active Substance: LEVETIRACETAM
  3. FUROSEMIDE. [Concomitant]
     Active Substance: FUROSEMIDE
  4. CASODEX [Concomitant]
     Active Substance: BICALUTAMIDE
  5. IRON [Concomitant]
     Active Substance: IRON
     Indication: HAEMOGLOBIN DECREASED
  6. KLOR-CON [Concomitant]
     Active Substance: POTASSIUM CHLORIDE
  7. FOLIC ACID. [Concomitant]
     Active Substance: FOLIC ACID
  8. REQUIP [Concomitant]
     Active Substance: ROPINIROLE HYDROCHLORIDE
  9. CLONAZEPAM. [Concomitant]
     Active Substance: CLONAZEPAM
  10. VITAMIN [Concomitant]
     Active Substance: VITAMINS
  11. ELIQUIS [Suspect]
     Active Substance: APIXABAN
     Indication: CEREBROVASCULAR ACCIDENT PROPHYLAXIS
     Route: 048
  12. METOPROLOL [Concomitant]
     Active Substance: METOPROLOL
  13. LIPITOR [Concomitant]
     Active Substance: ATORVASTATIN CALCIUM
  14. BABY ASPIRIN [Concomitant]
     Active Substance: ASPIRIN

REACTIONS (4)
  - Knee arthroplasty [Unknown]
  - Dyspnoea [Unknown]
  - Fluid retention [Unknown]
  - Aortic valve disease [Unknown]
